FAERS Safety Report 5326092-3 (Version None)
Quarter: 2007Q2

REPORT INFORMATION
  Report Type: 
  Country: None (occurrence: None)
  Receive Date: 20070510
  Receipt Date: 20070427
  Transmission Date: 20071010
  Serious: Yes (Hospitalization, Disabling, Other)
  Sender: FDA-Public Use
  Company Number: 163-21880-07040570

PATIENT
  Age: 52 Year
  Sex: Female

DRUGS (10)
  1. REVLIMID [Suspect]
     Indication: MULTIPLE MYELOMA
     Dosage: 15 MG, 14 OUT OF 21 DAYS, ORAL, 15 MG, 1 IN 1 D, ORAL
     Route: 048
     Dates: start: 20060930, end: 20061201
  2. REVLIMID [Suspect]
     Indication: MULTIPLE MYELOMA
     Dosage: 15 MG, 14 OUT OF 21 DAYS, ORAL, 15 MG, 1 IN 1 D, ORAL
     Route: 048
     Dates: start: 20070101, end: 20070127
  3. DEXAMETHASONE TAB [Suspect]
     Indication: DRUG USE FOR UNKNOWN INDICATION
  4. COUMADIN [Concomitant]
  5. CELEBREX [Concomitant]
  6. IBUPROFEN [Concomitant]
  7. FAMVIR [Concomitant]
  8. SYNTHROID [Concomitant]
  9. LISINOPRIL [Concomitant]
  10. COREG [Concomitant]

REACTIONS (8)
  - ARTHRITIS BACTERIAL [None]
  - CARDIOMYOPATHY [None]
  - DEHYDRATION [None]
  - FALL [None]
  - MITRAL VALVE INCOMPETENCE [None]
  - PNEUMONIA [None]
  - SEPSIS [None]
  - TRICUSPID VALVE INCOMPETENCE [None]
